FAERS Safety Report 5390241-1 (Version None)
Quarter: 2007Q3

REPORT INFORMATION
  Report Type: 
  Country: None (occurrence: None)
  Receive Date: 20070716
  Receipt Date: 20061019
  Transmission Date: 20080115
  Serious: Yes (Hospitalization, Other)
  Sender: FDA-Public Use
  Company Number: MPS1-10599

PATIENT
  Age: 4 Year
  Sex: Male
  Weight: 17 kg

DRUGS (4)
  1. ALDURAZYME [Suspect]
     Indication: MUCOPOLYSACCHARIDOSIS I
     Dosage: 3000 UNITS 1XW IV
     Route: 030
     Dates: start: 20030101
  2. ALDURAZYME [Suspect]
     Indication: MUCOPOLYSACCHARIDOSIS I
     Dosage: 175 U/KG 1XW IV
     Route: 030
     Dates: start: 20020101
  3. TELFAST [Concomitant]
  4. SOLU-MEDROL [Concomitant]

REACTIONS (6)
  - AGITATION [None]
  - DYSPNOEA [None]
  - ERYTHEMA [None]
  - OXYGEN SATURATION DECREASED [None]
  - URTICARIA [None]
  - WHEEZING [None]
